FAERS Safety Report 20308386 (Version 1)
Quarter: 2022Q1

REPORT INFORMATION
  Report Type: Spontaneous
  Country: NL (occurrence: NL)
  Receive Date: 20220107
  Receipt Date: 20220107
  Transmission Date: 20220423
  Serious: Yes (Other)
  Sender: FDA-Public Use
  Company Number: None

PATIENT
  Age: 39 Year
  Sex: Female

DRUGS (6)
  1. AMITRIPTYLINE [Interacting]
     Active Substance: AMITRIPTYLINE
     Indication: Anxiety disorder
     Dosage: 125 MILLIGRAM DAILY; AMITRIPTYLINE HCL TABLET 25MG / BRAND NAME NOT SPECIFIED, THERAPY END DATE: ASK
     Route: 065
     Dates: start: 201208
  2. AMITRIPTYLINE [Interacting]
     Active Substance: AMITRIPTYLINE
     Indication: Depression
  3. SULFAMETHOXAZOLE\TRIMETHOPRIM [Interacting]
     Active Substance: SULFAMETHOXAZOLE\TRIMETHOPRIM
     Indication: Urinary tract infection
     Dosage: 2 DOSAGE FORMS DAILY; COTRIMOXAZOL 960 TABLET 160/800MG / BRAND NAME NOT SPECIFIED
     Route: 065
     Dates: start: 20211110, end: 20211112
  4. ALLERGO-COMOD [Concomitant]
     Dosage: 20 MG/ML, CROMOGLICIC ACID EYE DROPS 20MG/ML / ALLERGO-COMOD EYE DROPS 20MG/ML VIAL 10ML, THERAPY ST
  5. MICONAZOLE NITRATE [Concomitant]
     Active Substance: MICONAZOLE NITRATE
     Dosage: 20 MG/G, MICONAZOL CREAM 20MG/G / BRAND NAME NOT SPECIFIED, THERAPY START AND END DATE: ASKU
  6. TRANEXAMIC ACID [Concomitant]
     Active Substance: TRANEXAMIC ACID
     Dosage: 500 MG, TRANEXAMIC ACID TABLET FO 500MG / BRAND NAME NOT SPECIFIED, THERAPY START AND END DATE: ASKU

REACTIONS (3)
  - Electrocardiogram QT prolonged [Recovered/Resolved]
  - Tachycardia [Recovered/Resolved]
  - Drug interaction [Unknown]

NARRATIVE: CASE EVENT DATE: 20211110
